FAERS Safety Report 12877330 (Version 1)
Quarter: 2016Q4

REPORT INFORMATION
  Report Type: Spontaneous
  Country: JP (occurrence: JP)
  Receive Date: 20161024
  Receipt Date: 20161024
  Transmission Date: 20170207
  Serious: Yes (Death, Other)
  Sender: FDA-Public Use
  Company Number: PHJP2016JP030158

PATIENT
  Age: 70 Year
  Sex: Male

DRUGS (1)
  1. IMATINIB [Suspect]
     Active Substance: IMATINIB
     Indication: CHRONIC MYELOID LEUKAEMIA
     Dosage: UNK
     Route: 048
     Dates: start: 200304

REACTIONS (8)
  - Chronic kidney disease [Unknown]
  - Colon cancer [Unknown]
  - Renal impairment [Unknown]
  - Suture related complication [Unknown]
  - Aortic aneurysm rupture [Fatal]
  - Second primary malignancy [Unknown]
  - Aortic aneurysm [Unknown]
  - Angina pectoris [Unknown]
